FAERS Safety Report 20355216 (Version 1)
Quarter: 2022Q1

REPORT INFORMATION
  Report Type: Spontaneous
  Country: US (occurrence: None)
  Receive Date: 20220119
  Receipt Date: 20220119
  Transmission Date: 20220423
  Serious: Yes (Death, Hospitalization)
  Sender: FDA-Public Use
  Company Number: None

PATIENT
  Age: 88 Year
  Sex: Female

DRUGS (13)
  1. BAMLANIVIMAB\ETESEVIMAB [Suspect]
     Active Substance: BAMLANIVIMAB\ETESEVIMAB
     Indication: COVID-19
     Dosage: OTHER FREQUENCY : ONCE;?
     Route: 042
     Dates: start: 20211104, end: 20211104
  2. ASPIRIN [Concomitant]
     Active Substance: ASPIRIN
  3. buspirone 5mg tablet [Concomitant]
  4. CEPHALEXIN [Concomitant]
     Active Substance: CEPHALEXIN
  5. vitamin B-12 500mcg [Concomitant]
  6. Aricept 10mg tablet [Concomitant]
  7. Lasix 40mg tablet [Concomitant]
  8. LEVOTHYROXINE [Concomitant]
     Active Substance: LEVOTHYROXINE
  9. mirtazapine 7.5mg tablet [Concomitant]
  10. nystatin 100,000 unit/gram cream [Concomitant]
  11. potassium chloride 10 mEq CR capsule [Concomitant]
  12. SIMVASTATIN [Concomitant]
     Active Substance: SIMVASTATIN
  13. venlafaxine 75mg 24hr capsule [Concomitant]

REACTIONS (7)
  - COVID-19 pneumonia [None]
  - Hypophagia [None]
  - Hypernatraemia [None]
  - Therapy non-responder [None]
  - Death [None]
  - Respiratory failure [None]
  - Cardiac failure congestive [None]

NARRATIVE: CASE EVENT DATE: 20211107
